FAERS Safety Report 13159381 (Version 1)
Quarter: 2017Q1

REPORT INFORMATION
  Report Type: Spontaneous
  Country: FR (occurrence: FR)
  Receive Date: 20170127
  Receipt Date: 20170127
  Transmission Date: 20170428
  Serious: Yes (Other)
  Sender: FDA-Public Use
  Company Number: FR-MALLINCKRODT-T201506128

PATIENT
  Age: 85 Year
  Sex: Female

DRUGS (6)
  1. ULTRA-TECHNEKOW FM [Suspect]
     Active Substance: TECHNETIUM TC-99M SODIUM PERTECHNETATE
     Indication: RADIOISOTOPE SCAN
     Dosage: 169.7 MBQ, SINGLE
     Route: 042
     Dates: start: 20151204, end: 20151204
  2. TECHNETIUM TC-99M SESTAMIBI KIT [Suspect]
     Active Substance: TECHNETIUM TC-99M SESTAMIBI
     Dosage: UNK
     Route: 042
     Dates: start: 20151204, end: 20151204
  3. ULTRA-TECHNEKOW FM [Suspect]
     Active Substance: TECHNETIUM TC-99M SODIUM PERTECHNETATE
     Dosage: 518.3 MBQ, SINGLE
     Route: 042
     Dates: start: 20151204, end: 20151204
  4. AMINOPHYLLIN [Suspect]
     Active Substance: AMINOPHYLLINE
     Indication: PROPHYLAXIS
     Dosage: 50 MG
     Route: 042
     Dates: start: 20151204, end: 20151204
  5. TECHNETIUM TC-99M SESTAMIBI KIT [Suspect]
     Active Substance: TECHNETIUM TC-99M SESTAMIBI
     Indication: RADIOISOTOPE SCAN
     Dosage: UNK
     Route: 042
     Dates: start: 20151204, end: 20151204
  6. PERSANTINE [Suspect]
     Active Substance: DIPYRIDAMOLE
     Indication: CARDIAC STRESS TEST
     Dosage: 37.5 MG, (7.5ML)
     Route: 042
     Dates: start: 20151204, end: 20151204

REACTIONS (1)
  - Erythema [Recovered/Resolved]

NARRATIVE: CASE EVENT DATE: 20151204
